FAERS Safety Report 4441396-4 (Version None)
Quarter: 2004Q3

REPORT INFORMATION
  Report Type: 
  Country: None (occurrence: None)
  Receive Date: 20040728
  Receipt Date: 20040628
  Transmission Date: 20050211
  Serious: No
  Sender: FDA-Public Use
  Company Number: USA040466230

PATIENT
  Age: 55 Year
  Sex: Male

DRUGS (5)
  1. STRATTERA [Suspect]
     Indication: ATTENTION DEFICIT/HYPERACTIVITY DISORDER
     Dosage: 60 MG DAY
     Dates: start: 20040309, end: 20040409
  2. DIAZEPAM [Concomitant]
  3. LIPITOR [Concomitant]
  4. ANXIETY [Concomitant]
  5. RASH [Concomitant]

REACTIONS (5)
  - ANXIETY [None]
  - DRY MOUTH [None]
  - DYSURIA [None]
  - RASH [None]
  - RED BLOOD CELLS SEMEN [None]
